FAERS Safety Report 9158994 (Version 2)
Quarter: 2013Q2

REPORT INFORMATION
  Report Type: Spontaneous
  Country: JP (occurrence: None)
  Receive Date: 20130213
  Receipt Date: 20130418
  Transmission Date: 20140414
  Serious: Yes (Hospitalization, Other)
  Sender: FDA-Public Use
  Company Number: JP-1196459

PATIENT
  Age: 70 Year
  Sex: Male

DRUGS (3)
  1. NEVANAC [Suspect]
     Route: 047
  2. LOXONIN [Concomitant]
  3. MOHRUS [Concomitant]

REACTIONS (2)
  - Interstitial lung disease [None]
  - Lymphocyte stimulation test positive [None]
